FAERS Safety Report 13457714 (Version 2)
Quarter: 2017Q2

REPORT INFORMATION
  Report Type: Spontaneous
  Country: US (occurrence: US)
  Receive Date: 20170419
  Receipt Date: 20170420
  Transmission Date: 20170830
  Serious: No
  Sender: FDA-Public Use
  Company Number: US-009507513-1704USA003792

PATIENT
  Sex: Female

DRUGS (1)
  1. CLARINEX [Suspect]
     Active Substance: DESLORATADINE
     Route: 048

REACTIONS (4)
  - Paraesthesia [Unknown]
  - Bladder disorder [Unknown]
  - Lip dry [Unknown]
  - Dysgeusia [Unknown]
